FAERS Safety Report 24743335 (Version 1)
Quarter: 2024Q4

REPORT INFORMATION
  Report Type: Spontaneous
  Country: US (occurrence: US)
  Receive Date: 20241217
  Receipt Date: 20241217
  Transmission Date: 20250115
  Serious: No
  Sender: STALLERGENES
  Company Number: US-STALCOR-2024-AER-02328

PATIENT
  Sex: Female

DRUGS (1)
  1. WHOLE WHEAT [Suspect]
     Active Substance: WHEAT
     Indication: Product used for unknown indication

REACTIONS (1)
  - Drug ineffective [Unknown]
